FAERS Safety Report 14499359 (Version 3)
Quarter: 2018Q2

REPORT INFORMATION
  Report Type: Report from Study
  Country: DE (occurrence: DE)
  Receive Date: 20180207
  Receipt Date: 20180420
  Transmission Date: 20180711
  Serious: Yes (Hospitalization)
  Sender: FDA-Public Use
  Company Number: DE-PFIZER INC-2018053362

PATIENT
  Age: 77 Year
  Sex: Male
  Weight: 73 kg

DRUGS (13)
  1. GEMCITABINE HYDROCHLORIDE. [Suspect]
     Active Substance: GEMCITABINE HYDROCHLORIDE
     Indication: PANCREATIC CARCINOMA
     Dosage: 1830 MG, UNK
     Dates: start: 20170627, end: 20170929
  2. METOPROLOL. [Concomitant]
     Active Substance: METOPROLOL
  3. ASPIRIN. [Concomitant]
     Active Substance: ASPIRIN
  4. MINOXIDIL. [Concomitant]
     Active Substance: MINOXIDIL
  5. ABRAXANE [Suspect]
     Active Substance: PACLITAXEL
     Indication: PANCREATIC CARCINOMA
     Dosage: 175 MG, UNK
     Route: 041
  6. LISINOPRIL. [Concomitant]
     Active Substance: LISINOPRIL
  7. RIOPAN /00141701/ [Concomitant]
     Active Substance: MAGALDRATE
  8. ABRAXANE [Suspect]
     Active Substance: PACLITAXEL
     Dosage: 230 MG, UNK
     Route: 041
     Dates: start: 20170627
  9. SIMVASTATIN. [Concomitant]
     Active Substance: SIMVASTATIN
  10. GEMCITABINE HYDROCHLORIDE. [Suspect]
     Active Substance: GEMCITABINE HYDROCHLORIDE
     Dosage: 1400 MG, UNK
  11. ENOXAPARIN [Concomitant]
     Active Substance: ENOXAPARIN
     Dosage: 0.2 ML, UNK
  12. NITRENDIPIN [Concomitant]
     Active Substance: NITRENDIPINE
  13. REMIPROSTAN [Concomitant]

REACTIONS (5)
  - Fatigue [Recovered/Resolved]
  - Leukopenia [Recovered/Resolved]
  - Haematemesis [Recovered/Resolved]
  - Thrombocytopenia [Recovered/Resolved]
  - Diarrhoea [Recovered/Resolved]

NARRATIVE: CASE EVENT DATE: 20170801
